FAERS Safety Report 5747283-3 (Version None)
Quarter: 2008Q2

REPORT INFORMATION
  Report Type: 
  Country: None (occurrence: None)
  Receive Date: 20080523
  Receipt Date: 20080510
  Transmission Date: 20081010
  Serious: Yes (Other)
  Sender: FDA-Public Use
  Company Number: US-BAYER-200823233NA

PATIENT
  Sex: Male

DRUGS (5)
  1. LEVITRA [Suspect]
     Indication: DRUG USE FOR UNKNOWN INDICATION
     Route: 048
     Dates: start: 20080510
  2. REQUIP [Concomitant]
  3. PANTOPRAZOLE SODIUM [Concomitant]
  4. RANITIDINE [Concomitant]
  5. TRIAMTERENE AND HYDROCHLOROTHIAZIDE [Concomitant]

REACTIONS (2)
  - BLOOD PRESSURE DECREASED [None]
  - URTICARIA [None]
